FAERS Safety Report 25020165 (Version 1)
Quarter: 2025Q1

REPORT INFORMATION
  Report Type: Spontaneous
  Country: US (occurrence: US)
  Receive Date: 20250227
  Receipt Date: 20250227
  Transmission Date: 20250409
  Serious: No
  Sender: PFIZER
  Company Number: US-BRISTOL-MYERS SQUIBB COMPANY-2025-019587

PATIENT
  Age: 65 Year
  Sex: Female

DRUGS (3)
  1. TUKYSA [Interacting]
     Active Substance: TUCATINIB
     Dosage: TUKYSA 150MG; 2 TABLETS TWICE DAILY
  2. TUKYSA [Interacting]
     Active Substance: TUCATINIB
     Dosage: 150 MG, 2X/DAY
  3. ELIQUIS [Interacting]
     Active Substance: APIXABAN

REACTIONS (1)
  - Drug interaction [Unknown]
